FAERS Safety Report 16662512 (Version 2)
Quarter: 2019Q4

REPORT INFORMATION
  Report Type: Report from Study
  Country: US (occurrence: US)
  Receive Date: 20190802
  Receipt Date: 20191002
  Transmission Date: 20200122
  Serious: Yes (Death)
  Sender: FDA-Public Use
  Company Number: US-EXELIXIS-CABO-18017922

PATIENT
  Age: 72 Year
  Sex: Male

DRUGS (2)
  1. CABOMETYX [Suspect]
     Active Substance: CABOZANTINIB S-MALATE
     Indication: METASTASIS
     Dosage: 60 MG, QD (IN EVENING, 2 HRS AFTER EATING WITH A FULL GLASS OF WATER)
     Dates: start: 20181203, end: 20181228
  2. CABOMETYX [Suspect]
     Active Substance: CABOZANTINIB S-MALATE
     Indication: MALIGNANT MELANOMA

REACTIONS (12)
  - Off label use [Unknown]
  - Death [Fatal]
  - Tooth infection [Unknown]
  - Chest pain [Unknown]
  - Muscle spasms [Unknown]
  - Fall [Unknown]
  - Palmar-plantar erythrodysaesthesia syndrome [Unknown]
  - Urinary tract infection [Unknown]
  - Weight increased [Unknown]
  - Oral pain [Unknown]
  - Blood pressure increased [Recovering/Resolving]
  - Fatigue [Unknown]

NARRATIVE: CASE EVENT DATE: 201812
